FAERS Safety Report 4708174-X (Version None)
Quarter: 2005Q3

REPORT INFORMATION
  Report Type: 
  Country: None (occurrence: None)
  Receive Date: 20050705
  Receipt Date: 20050705
  Transmission Date: 20060218
  Serious: No
  Sender: FDA-Public Use
  Company Number: None

PATIENT
  Sex: Female
  Weight: 64.8644 kg

DRUGS (2)
  1. NEURONTIN [Suspect]
     Indication: NEUROPATHY
     Dosage: 100 MG
  2. PREVACID [Suspect]
     Indication: GASTROOESOPHAGEAL REFLUX DISEASE
     Dosage: 30 MG

REACTIONS (1)
  - NO ADVERSE EFFECT [None]
